FAERS Safety Report 22535135 (Version 1)
Quarter: 2023Q2

REPORT INFORMATION
  Report Type: Spontaneous
  Country: US (occurrence: None)
  Receive Date: 20230607
  Receipt Date: 20230607
  Transmission Date: 20230721
  Serious: Yes (Hospitalization)
  Sender: FDA-Public Use
  Company Number: None

PATIENT
  Age: 64 Year
  Sex: Male
  Weight: 75.6 kg

DRUGS (1)
  1. CVS HEALTH NIGHTTIME SLEEP-AID [Suspect]
     Active Substance: DIPHENHYDRAMINE HYDROCHLORIDE
     Indication: Insomnia
     Dosage: OTHER STRENGTH : X;?OTHER QUANTITY : 1 OZ;?FREQUENCY : AT BEDTIME;?
     Route: 048
     Dates: start: 20220101, end: 20230607

REACTIONS (3)
  - Peripheral swelling [None]
  - Debridement [None]
  - Skin ulcer haemorrhage [None]

NARRATIVE: CASE EVENT DATE: 20230607
